FAERS Safety Report 17673164 (Version 2)
Quarter: 2020Q3

REPORT INFORMATION
  Report Type: Spontaneous
  Country: US (occurrence: US)
  Receive Date: 20200415
  Receipt Date: 20200811
  Transmission Date: 20201102
  Serious: No
  Sender: FDA-Public Use
  Company Number: US-HTU-2020US020332

PATIENT
  Age: 59 Year
  Sex: Female

DRUGS (10)
  1. ASPIRIN                            /00002701/ [Concomitant]
     Active Substance: ASPIRIN
  2. VALCHLOR [Suspect]
     Active Substance: MECHLORETHAMINE
     Dosage: UNK, BID
     Route: 061
     Dates: start: 202002, end: 20200310
  3. CLONIDINE. [Concomitant]
     Active Substance: CLONIDINE
  4. BYSTOLIC [Concomitant]
     Active Substance: NEBIVOLOL HYDROCHLORIDE
  5. VALCHLOR [Suspect]
     Active Substance: MECHLORETHAMINE
     Indication: CUTANEOUS T-CELL LYMPHOMA
     Dosage: THIN FILM, BID
     Route: 061
  6. KLOR?CON [Concomitant]
     Active Substance: POTASSIUM CHLORIDE
  7. NIFEDIPINE. [Concomitant]
     Active Substance: NIFEDIPINE
  8. TRIAMCINOLONE [Concomitant]
     Active Substance: TRIAMCINOLONE
  9. LISINOPRIL. [Suspect]
     Active Substance: LISINOPRIL
     Indication: BLOOD PRESSURE INCREASED
  10. HYDROCHLOROTHIAZIDE. [Concomitant]
     Active Substance: HYDROCHLOROTHIAZIDE

REACTIONS (9)
  - Off label use [Unknown]
  - Drug hypersensitivity [Unknown]
  - Application site urticaria [Unknown]
  - Lip swelling [Recovered/Resolved]
  - Exposure via skin contact [Unknown]
  - Application site pruritus [Recovered/Resolved]
  - Application site erythema [Recovered/Resolved]
  - Skin irritation [Unknown]
  - Rash [Unknown]

NARRATIVE: CASE EVENT DATE: 20200310
